FAERS Safety Report 8171422-0 (Version None)
Quarter: 2012Q1

REPORT INFORMATION
  Report Type: 
  Country: None (occurrence: None)
  Receive Date: 20120228
  Receipt Date: 20120223
  Transmission Date: 20120608
  Serious: Yes (Other)
  Sender: FDA-Public Use
  Company Number: US-BAYER-2011-105663

PATIENT
  Age: 20 Year
  Sex: Female
  Weight: 53 kg

DRUGS (5)
  1. YAZ [Suspect]
     Indication: CONTRACEPTION
     Dosage: UNK
     Dates: start: 20081001, end: 20091101
  2. SULFAMETHOXAZOLE [Concomitant]
     Dosage: 800-160 MG
     Route: 048
     Dates: start: 20070605, end: 20091208
  3. PREVACID [Concomitant]
     Dosage: DAILY DOSE 30 MG
     Route: 048
     Dates: start: 20091023
  4. VALTREX [Concomitant]
     Dosage: DAILY DOSE 500 MG
     Route: 048
     Dates: start: 20091014
  5. TRIMETHOPRIM [Concomitant]
     Dosage: 800-160 MG
     Route: 048
     Dates: start: 20070605, end: 20091208

REACTIONS (3)
  - CHOLECYSTITIS [None]
  - PAIN [None]
  - INJURY [None]
